FAERS Safety Report 8684503 (Version 4)
Quarter: 2015Q4

REPORT INFORMATION
  Report Type: Report from Study
  Country: CA (occurrence: CA)
  Receive Date: 20120726
  Receipt Date: 20151006
  Transmission Date: 20160305
  Serious: Yes (Death, Other)
  Sender: FDA-Public Use
  Company Number: CA-ASTRAZENECA-2012SE51269

PATIENT
  Age: 84 Year
  Sex: Male

DRUGS (13)
  1. ZOLADEX LA [Suspect]
     Active Substance: GOSERELIN ACETATE
     Indication: PROSTATE CANCER
     Route: 058
     Dates: start: 20111022
  2. ZOLADEX LA [Suspect]
     Active Substance: GOSERELIN ACETATE
     Indication: PROSTATE CANCER
     Route: 058
     Dates: start: 20100928
  3. ZOLADEX LA [Suspect]
     Active Substance: GOSERELIN ACETATE
     Indication: PROSTATE CANCER
     Route: 058
     Dates: start: 20140930
  4. XARELTO [Concomitant]
     Active Substance: RIVAROXABAN
     Dates: start: 201502
  5. ZOLADEX LA [Suspect]
     Active Substance: GOSERELIN ACETATE
     Indication: PROSTATE CANCER
     Route: 058
     Dates: start: 20150625
  6. MYLAN-AMLODIPINE [Concomitant]
  7. BICALUTAMIDE. [Concomitant]
     Active Substance: BICALUTAMIDE
     Dates: start: 201502
  8. WARFARIN [Concomitant]
     Active Substance: WARFARIN
  9. ZOLADEX LA [Suspect]
     Active Substance: GOSERELIN ACETATE
     Indication: PROSTATE CANCER
     Route: 058
     Dates: start: 20110928
  10. SENOKOT [Concomitant]
     Active Substance: SENNOSIDES
  11. EZETROL [Concomitant]
     Active Substance: EZETIMIBE
  12. ATORVASTATIN [Concomitant]
     Active Substance: ATORVASTATIN
  13. SOFLAX [Concomitant]
     Active Substance: DOCUSATE

REACTIONS (7)
  - Condition aggravated [Not Recovered/Not Resolved]
  - Ocular neoplasm [Recovered/Resolved]
  - Abdominal pain upper [Not Recovered/Not Resolved]
  - Decreased appetite [Not Recovered/Not Resolved]
  - Metastasis [Not Recovered/Not Resolved]
  - Death [Fatal]
  - Injection site haemorrhage [Not Recovered/Not Resolved]

NARRATIVE: CASE EVENT DATE: 20120515
